FAERS Safety Report 6387345-3 (Version None)
Quarter: 2009Q3

REPORT INFORMATION
  Report Type: 
  Country: None (occurrence: None)
  Receive Date: 20090930
  Receipt Date: 20090914
  Transmission Date: 20100115
  Serious: Yes (Death, Hospitalization)
  Sender: FDA-Public Use
  Company Number: 2009AL002856

PATIENT
  Age: 72 Year
  Sex: Female

DRUGS (20)
  1. DIGOXIN [Suspect]
     Dosage: 0.125MG, DAILY, PO; 0.25MG, DAILY, PO
     Route: 048
     Dates: start: 20060101, end: 20080101
  2. DIGOXIN [Suspect]
     Dosage: 0.125MG, DAILY, PO; 0.25MG, DAILY, PO
     Route: 048
     Dates: start: 20060625
  3. LISINOPRIL [Concomitant]
  4. ASPIRIN [Concomitant]
  5. ALBUTEROL [Concomitant]
  6. GLIPIZIDE [Concomitant]
  7. LEVOXYL [Concomitant]
  8. LASIX [Concomitant]
  9. SPIRONOLACTONE [Concomitant]
  10. CARDIZEM [Concomitant]
  11. COREG [Concomitant]
  12. SYNTHROID [Concomitant]
  13. PRINIVIL [Concomitant]
  14. COUMADIN [Concomitant]
  15. AUGMENTIN [Concomitant]
  16. POTASSIUM CHLORIDE [Concomitant]
  17. URSODIOL [Concomitant]
  18. XANAX [Concomitant]
  19. NITROGLYCERIN [Concomitant]
  20. NEXIUM [Concomitant]

REACTIONS (26)
  - ATRIAL FIBRILLATION [None]
  - ATRIAL FLUTTER [None]
  - ATRIOVENTRICULAR BLOCK [None]
  - BILE DUCT OBSTRUCTION [None]
  - CACHEXIA [None]
  - CARDIAC FAILURE CONGESTIVE [None]
  - CARDIOMYOPATHY [None]
  - CELLULITIS [None]
  - CHOLECYSTITIS [None]
  - CHOLELITHIASIS [None]
  - ECONOMIC PROBLEM [None]
  - EMOTIONAL DISORDER [None]
  - HYPERTENSION [None]
  - INJURY [None]
  - MITRAL VALVE INCOMPETENCE [None]
  - MULTI-ORGAN FAILURE [None]
  - OSTEOPOROSIS [None]
  - POLYCYTHAEMIA [None]
  - REFUSAL OF TREATMENT BY PATIENT [None]
  - RENAL ARTERY STENOSIS [None]
  - RENAL FAILURE CHRONIC [None]
  - SEPTIC SHOCK [None]
  - SKIN ULCER [None]
  - SURGERY [None]
  - TRICUSPID VALVE INCOMPETENCE [None]
  - TYPE 2 DIABETES MELLITUS [None]
